FAERS Safety Report 5358503-1 (Version None)
Quarter: 2007Q2

REPORT INFORMATION
  Report Type: 
  Country: None (occurrence: None)
  Receive Date: 20070614
  Receipt Date: 20070614
  Transmission Date: 20071010
  Serious: Yes (Life-Threatening, Disabling, Other)
  Sender: FDA-Public Use
  Company Number: None

PATIENT
  Age: 8 Year
  Sex: Male
  Weight: 24.9478 kg

DRUGS (6)
  1. NASONEX [Suspect]
     Indication: COUGH
     Dosage: 1 SPRAY EACH NOSTRIL ONCE EVERY NIGHT
     Dates: start: 20070608, end: 20070609
  2. NASONEX [Suspect]
     Indication: RHINORRHOEA
     Dosage: 1 SPRAY EACH NOSTRIL ONCE EVERY NIGHT
     Dates: start: 20070608, end: 20070609
  3. NASONEX [Suspect]
     Indication: COUGH
     Dosage: 1 SPRAY EACH NOSTRIL ONCE EVERY NIGHT
     Dates: start: 19990609, end: 20070609
  4. NASONEX [Suspect]
     Indication: RHINORRHOEA
     Dosage: 1 SPRAY EACH NOSTRIL ONCE EVERY NIGHT
     Dates: start: 19990609, end: 20070609
  5. ZERTEC [Concomitant]
  6. SINGULAIR [Concomitant]

REACTIONS (14)
  - ANXIETY [None]
  - CONVULSION [None]
  - DISORIENTATION [None]
  - DRUG HYPERSENSITIVITY [None]
  - DYSPNOEA [None]
  - FATIGUE [None]
  - FEAR [None]
  - HALLUCINATION [None]
  - MYDRIASIS [None]
  - OCULAR HYPERAEMIA [None]
  - PANIC ATTACK [None]
  - SLEEP TERROR [None]
  - STRESS [None]
  - TREMOR [None]
